FAERS Safety Report 9168942 (Version 1)
Quarter: 2013Q1

REPORT INFORMATION
  Report Type: Report from Study
  Country: US (occurrence: US)
  Receive Date: 20130318
  Receipt Date: 20130318
  Transmission Date: 20140127
  Serious: Yes (Hospitalization)
  Sender: FDA-Public Use
  Company Number: US-009507513-1303USA008027

PATIENT
  Age: 54 Year
  Sex: Female

DRUGS (4)
  1. REBETOL [Suspect]
     Dosage: 6 IN 1 DAY
  2. REBETOL [Suspect]
     Dosage: UNK, BID
  3. VICTRELIS [Suspect]
  4. PEGASYS [Suspect]

REACTIONS (10)
  - Local swelling [Unknown]
  - White blood cell count decreased [Unknown]
  - Blood potassium decreased [Unknown]
  - Anaemia [Unknown]
  - Local swelling [Unknown]
  - Swelling face [Unknown]
  - Malaise [Unknown]
  - Abdominal pain upper [Unknown]
  - Immunodeficiency [Unknown]
  - Candida infection [Unknown]
